FAERS Safety Report 25195304 (Version 2)
Quarter: 2025Q2

REPORT INFORMATION
  Report Type: Spontaneous
  Country: US (occurrence: US)
  Receive Date: 20250415
  Receipt Date: 20250418
  Transmission Date: 20250717
  Serious: Yes (Life-Threatening, Hospitalization, Other)
  Sender: SANOFI AVENTIS
  Company Number: US-MLMSERVICE-20250403-PI467282-00123-1

PATIENT
  Age: 65 Year
  Sex: Female

DRUGS (3)
  1. DOCETAXEL [Suspect]
     Active Substance: DOCETAXEL
     Indication: Cervix carcinoma stage IV
  2. DOCETAXEL [Suspect]
     Active Substance: DOCETAXEL
     Indication: Metastases to liver
  3. DOCETAXEL [Suspect]
     Active Substance: DOCETAXEL
     Indication: Cervix carcinoma recurrent

REACTIONS (17)
  - Tumour lysis syndrome [Unknown]
  - Acute kidney injury [Unknown]
  - Dyspnoea [Unknown]
  - Lethargy [Unknown]
  - Peripheral swelling [Unknown]
  - Decreased appetite [Unknown]
  - Abdominal pain [Unknown]
  - Abdominal distension [Unknown]
  - Orthopnoea [Unknown]
  - Pollakiuria [Unknown]
  - Chromaturia [Unknown]
  - Abdominal tenderness [Unknown]
  - Ascites [Unknown]
  - Hypertransaminasaemia [Unknown]
  - Lactic acidosis [Unknown]
  - Hyperuricaemia [Unknown]
  - Off label use [Unknown]
